FAERS Safety Report 14051873 (Version 1)
Quarter: 2017Q4

REPORT INFORMATION
  Report Type: Spontaneous
  Country: SK (occurrence: SK)
  Receive Date: 20171005
  Receipt Date: 20171005
  Transmission Date: 20180321
  Serious: Yes (Other)
  Sender: FDA-Public Use
  Company Number: SK-BAYER-2017-185167

PATIENT
  Age: 82 Year
  Sex: Male

DRUGS (1)
  1. CIPROXIN [Suspect]
     Active Substance: CIPROFLOXACIN
     Indication: INFECTION
     Route: 042

REACTIONS (3)
  - Gait inability [None]
  - Neuropathy peripheral [None]
  - Ataxia [None]
